FAERS Safety Report 26153530 (Version 2)
Quarter: 2025Q4

REPORT INFORMATION
  Report Type: Report from Study
  Country: CA (occurrence: CA)
  Receive Date: 20251214
  Receipt Date: 20251215
  Transmission Date: 20260118
  Serious: Yes (Other)
  Sender: CELLTRION
  Company Number: CA-CELLTRION INC.-2025CA018748

PATIENT

DRUGS (7)
  1. OMALIZUMAB [Suspect]
     Active Substance: OMALIZUMAB
     Indication: Chronic spontaneous urticaria
     Dosage: 300 MG, EVERY 4 WEEKS
     Route: 058
  2. OMALIZUMAB [Suspect]
     Active Substance: OMALIZUMAB
     Dosage: MAINTENANCE - 300 MG - SC (SUBCUTANEOUS) EVERY 4 WEEKS
     Route: 058
     Dates: start: 20250610
  3. OMALIZUMAB [Suspect]
     Active Substance: OMALIZUMAB
     Dosage: MAINTENANCE - 150MG - SC(SUBCUTANEOUS) EVERY 4 WEEKS
     Route: 058
     Dates: start: 20250610
  4. VYVANSE [Concomitant]
     Active Substance: LISDEXAMFETAMINE DIMESYLATE
     Dosage: 30 MG, DAILY
  5. BISOPROLOL [Concomitant]
     Active Substance: BISOPROLOL
     Dosage: 5 MG, DAILY
  6. CETIRIZINE [Concomitant]
     Active Substance: CETIRIZINE HYDROCHLORIDE
     Dosage: 40 MG
     Dates: start: 20250113
  7. BRIMONIDINE [BRIMONIDINE TARTRATE] [Concomitant]
     Dosage: DAILY
     Route: 061

REACTIONS (14)
  - Cardiac disorder [Unknown]
  - Lung disorder [Unknown]
  - Blood pressure abnormal [Unknown]
  - Anxiety [Unknown]
  - Tearfulness [Unknown]
  - Dysgeusia [Recovered/Resolved]
  - Oropharyngeal discomfort [Recovered/Resolved]
  - Erythema [Unknown]
  - Dizziness [Recovered/Resolved]
  - Alopecia [Unknown]
  - Headache [Unknown]
  - Therapy interrupted [Unknown]
  - Underdose [Unknown]
  - Intentional dose omission [Unknown]

NARRATIVE: CASE EVENT DATE: 20250101
